FAERS Safety Report 8270462-0 (Version None)
Quarter: 2012Q2

REPORT INFORMATION
  Report Type: 
  Country: None (occurrence: None)
  Receive Date: 20120410
  Receipt Date: 20120404
  Transmission Date: 20120825
  Serious: Yes (Other)
  Sender: FDA-Public Use
  Company Number: GB-SANOFI-AVENTIS-2012SA023870

PATIENT
  Sex: Female

DRUGS (1)
  1. LANTUS [Suspect]
     Route: 065

REACTIONS (2)
  - MATERNAL EXPOSURE DURING PREGNANCY [None]
  - POLYHYDRAMNIOS [None]
